FAERS Safety Report 10072471 (Version 2)
Quarter: 2014Q2

REPORT INFORMATION
  Report Type: Spontaneous
  Country: BR (occurrence: BR)
  Receive Date: 20140411
  Receipt Date: 20140411
  Transmission Date: 20141212
  Serious: Yes (Other)
  Sender: FDA-Public Use
  Company Number: BR-PFIZER INC-2012256458

PATIENT
  Age: 60 Year
  Sex: Female
  Weight: 76 kg

DRUGS (9)
  1. CHAMPIX [Suspect]
     Indication: SMOKING CESSATION THERAPY
     Dosage: UNK
     Route: 048
     Dates: start: 2013, end: 2013
  2. METFORMIN [Concomitant]
     Indication: DIABETES MELLITUS
     Dosage: UNK
  3. AZUKON MR [Concomitant]
     Indication: DIABETES MELLITUS
     Dosage: UNK
  4. CONCARDIO [Concomitant]
     Indication: CARDIAC DISORDER
     Dosage: UNK
  5. CLOPIDOGREL [Concomitant]
     Indication: CARDIOVASCULAR DISORDER
     Dosage: UNK
  6. DAXAS [Concomitant]
     Indication: LUNG DISORDER
     Dosage: UNK
  7. MONOCORDIL [Concomitant]
     Indication: CARDIAC DISORDER
     Dosage: UNK
  8. PERIDAL [Concomitant]
     Indication: LUNG DISORDER
     Dosage: UNK
  9. FOSTAIR [Concomitant]
     Indication: LUNG DISORDER
     Dosage: UNK

REACTIONS (8)
  - Lung neoplasm malignant [Unknown]
  - Depression [Not Recovered/Not Resolved]
  - Panic disorder [Unknown]
  - Tremor [Unknown]
  - Headache [Unknown]
  - Thirst [Unknown]
  - Dizziness [Unknown]
  - Fear of death [Unknown]
